FAERS Safety Report 5918282-3 (Version None)
Quarter: 2008Q4

REPORT INFORMATION
  Report Type: 
  Country: None (occurrence: None)
  Receive Date: 20081010
  Receipt Date: 20080925
  Transmission Date: 20090506
  Serious: Yes (Death)
  Sender: FDA-Public Use
  Company Number: CHPA2008US16116

PATIENT
  Age: 3 Month
  Sex: Male

DRUGS (5)
  1. DEXTROMETHORPHAN HYDROBROMIDE [Suspect]
  2. PSEUDOEPHEDRINE HCL [Suspect]
  3. EPHEDRINE SUL CAP [Suspect]
  4. TYLENOL INFANTS DROPS (PARACETAMOL) [Suspect]
  5. DRUG THERAPY NOS (DRUG THERAPY NOS) [Suspect]

REACTIONS (4)
  - OVERDOSE [None]
  - PETECHIAE [None]
  - POISONING [None]
  - SUDDEN INFANT DEATH SYNDROME [None]
